FAERS Safety Report 10196362 (Version 1)
Quarter: 2014Q2

REPORT INFORMATION
  Report Type: Spontaneous
  Country: US (occurrence: None)
  Receive Date: 20140522
  Receipt Date: 20140522
  Transmission Date: 20141212
  Serious: Yes (Other)
  Sender: FDA-Public Use
  Company Number: 001740686A

PATIENT
  Age: 16 Year
  Sex: Female

DRUGS (3)
  1. PROACTIV + SKIN SMOOTHING EXFOLIATOR [Suspect]
     Indication: ACNE
     Dosage: DERMAL
     Dates: start: 20140318, end: 20140417
  2. PROACTIV + PORE TARGETING TREATMENT [Suspect]
     Indication: ACNE
     Dosage: DERMAL
     Dates: start: 20140318, end: 20140417
  3. PROACTIV + COMPLEXION PERFECTING HYDRATOR [Suspect]
     Indication: ACNE
     Dosage: DERMAL
     Dates: start: 20140318, end: 20140417

REACTIONS (3)
  - Hypersensitivity [None]
  - Swelling face [None]
  - Eye swelling [None]
